FAERS Safety Report 4701597-4 (Version None)
Quarter: 2005Q2

REPORT INFORMATION
  Report Type: 
  Country: None (occurrence: None)
  Receive Date: 20050627
  Receipt Date: 20050607
  Transmission Date: 20051028
  Serious: Yes (Hospitalization)
  Sender: FDA-Public Use
  Company Number: ATO-05-0213

PATIENT
  Age: 73 Year
  Sex: Female

DRUGS (4)
  1. TRISENOX [Suspect]
     Indication: ACUTE PROMYELOCYTIC LEUKAEMIA
     Dosage: 6.99 MG (6.99 MG, QD), IVI
     Route: 042
     Dates: start: 20050221, end: 20050317
  2. SULFAMETHOXAZOLE [Concomitant]
  3. TRIMETHOPRIM [Concomitant]
  4. POLYMYXIN B SULFATE [Concomitant]

REACTIONS (4)
  - ERYTHEMA [None]
  - HOT FLUSH [None]
  - PLATELET COUNT DECREASED [None]
  - WHITE BLOOD CELL COUNT DECREASED [None]
